FAERS Safety Report 7429688-8 (Version None)
Quarter: 2011Q2

REPORT INFORMATION
  Report Type: 
  Country: None (occurrence: None)
  Receive Date: 20110421
  Receipt Date: 20110121
  Transmission Date: 20111010
  Serious: No
  Sender: FDA-Public Use
  Company Number: US-MYLANLABS-2011S1001524

PATIENT
  Age: 19 Year
  Sex: Male
  Weight: 63.5 kg

DRUGS (2)
  1. DIVALPROEX SODIUM EXTENDED RELEASE [Suspect]
     Indication: BIPOLAR I DISORDER
     Route: 048
     Dates: start: 20100927, end: 20110121
  2. SEROQUEL [Concomitant]

REACTIONS (4)
  - BIPOLAR I DISORDER [None]
  - MOOD ALTERED [None]
  - IRRITABILITY [None]
  - DRUG LEVEL DECREASED [None]
